FAERS Safety Report 10076260 (Version 1)
Quarter: 2014Q2

REPORT INFORMATION
  Report Type: Spontaneous
  Country: US (occurrence: None)
  Receive Date: 20140410
  Receipt Date: 20140410
  Transmission Date: 20141212
  Serious: Yes (Life-Threatening, Hospitalization)
  Sender: FDA-Public Use
  Company Number: UTC-045956

PATIENT
  Age: 45 Year
  Sex: Male
  Weight: 129.2 kg

DRUGS (3)
  1. REMODULIN [Suspect]
     Indication: COR PULMONALE CHRONIC
     Dosage: 56.16 UG/KG (0.039 UG/KG, 1 IN 1 MIN), SUBCUTANEOUS
     Route: 058
     Dates: start: 20130529
  2. LETAIRIS (AMBRISENTAN) (UNKNOWN) [Concomitant]
  3. ADCIRCA (TADALAFIL) (UNKNOWN) [Concomitant]

REACTIONS (3)
  - Apparent death [None]
  - Coma [None]
  - Respiratory arrest [None]
